FAERS Safety Report 4967851-6 (Version None)
Quarter: 2006Q2

REPORT INFORMATION
  Report Type: 
  Country: None (occurrence: None)
  Receive Date: 20060410
  Receipt Date: 20050913
  Transmission Date: 20061013
  Serious: Yes (Other)
  Sender: FDA-Public Use
  Company Number: US-MERCK-0509USA01835

PATIENT
  Age: 50 Year
  Sex: Male
  Weight: 77 kg

DRUGS (6)
  1. VIOXX [Suspect]
     Indication: MONARTHRITIS
     Route: 048
     Dates: start: 20010101, end: 20030101
  2. TYLENOL (CAPLET) [Concomitant]
     Route: 065
  3. XANAX [Concomitant]
     Route: 065
     Dates: start: 20020101
  4. SEROQUEL [Concomitant]
     Route: 065
     Dates: start: 20020101
  5. TRAZODONE HYDROCHLORIDE [Concomitant]
     Route: 065
     Dates: start: 20020101
  6. REMERON [Concomitant]
     Route: 065
     Dates: start: 20020101

REACTIONS (13)
  - ALCOHOL POISONING [None]
  - ANGINA UNSTABLE [None]
  - CARDIAC DISORDER [None]
  - DEPRESSION [None]
  - EMOTIONAL DISORDER [None]
  - HAEMORRHAGIC STROKE [None]
  - IMPRISONMENT [None]
  - INSOMNIA [None]
  - LEGAL PROBLEM [None]
  - MENTAL DISORDER [None]
  - MYOCARDIAL INFARCTION [None]
  - PRESCRIBED OVERDOSE [None]
  - TRANSIENT ISCHAEMIC ATTACK [None]
